FAERS Safety Report 5748202-6 (Version None)
Quarter: 2008Q2

REPORT INFORMATION
  Report Type: 
  Country: None (occurrence: None)
  Receive Date: 20080523
  Receipt Date: 20080512
  Transmission Date: 20081010
  Serious: Yes (Other)
  Sender: FDA-Public Use
  Company Number: US-PFIZER INC-2008032985

PATIENT
  Sex: Female
  Weight: 62.727 kg

DRUGS (4)
  1. LYRICA [Suspect]
     Indication: NEUROPATHY PERIPHERAL
     Route: 048
     Dates: start: 20060601, end: 20080411
  2. ADVIL [Concomitant]
  3. ACYCLOVIR SODIUM [Concomitant]
  4. SYNTHROID [Concomitant]

REACTIONS (5)
  - ABASIA [None]
  - DIZZINESS [None]
  - FALL [None]
  - INSOMNIA [None]
  - VISION BLURRED [None]
